FAERS Safety Report 4919150-6 (Version None)
Quarter: 2006Q1

REPORT INFORMATION
  Report Type: 
  Country: None (occurrence: None)
  Receive Date: 20060222
  Receipt Date: 20060215
  Transmission Date: 20060701
  Serious: Yes (Life-Threatening, Hospitalization)
  Sender: FDA-Public Use
  Company Number: AT-AVENTIS-200611437GDDC

PATIENT
  Age: 61 Year
  Sex: Male

DRUGS (11)
  1. LANTUS [Suspect]
     Indication: DIABETES MELLITUS
     Route: 058
     Dates: end: 20060215
  2. AUTOPEN INSULIN INJECTION PEN [Suspect]
  3. ACETYLSALICYLIC ACID SRT [Concomitant]
  4. CALCIUM DOBESILAT [Concomitant]
  5. CANDESARTAN CILEXETIL [Concomitant]
  6. RAMIPRIL [Concomitant]
     Dosage: DOSE: 5 MG 1/0/0.5
  7. URAPIDIL [Concomitant]
     Dosage: DOSE: 60 MG
  8. MOXONIDIN [Concomitant]
     Dosage: DOSE: 0.4 0/0/0.5
  9. FUROSEMIDE [Concomitant]
     Dosage: DOSE: 500 0.5/0.5/0
  10. CARVEDILOL [Concomitant]
     Dosage: DOSE: 25 MG
  11. XIPAMID [Concomitant]
     Dosage: DOSE: 1/0/0

REACTIONS (5)
  - DIABETIC NEPHROPATHY [None]
  - HYPERGLYCAEMIA [None]
  - HYPERTONIA [None]
  - PHARMACEUTICAL PRODUCT COMPLAINT [None]
  - RETINOPATHY [None]
